FAERS Safety Report 8513960-4 (Version None)
Quarter: 2012Q3

REPORT INFORMATION
  Report Type: 
  Country: None (occurrence: None)
  Receive Date: 20120717
  Receipt Date: 20120502
  Transmission Date: 20120928
  Serious: Yes (Hospitalization)
  Sender: FDA-Public Use
  Company Number: FR-UCBSA-061494

PATIENT
  Age: 63 Year
  Sex: Female
  Weight: 80 kg

DRUGS (4)
  1. CIMZIA [Suspect]
     Dosage: 400MG EVERY TWO WEEKS AND THEN 200MG EVERY TWO WEEKS.
     Route: 058
     Dates: start: 20120329, end: 20120412
  2. PREDNISONE TAB [Concomitant]
     Indication: RHEUMATOID ARTHRITIS
     Dosage: 5MG DAILY
     Route: 048
     Dates: start: 20080601
  3. CIMZIA [Suspect]
     Indication: RHEUMATOID ARTHRITIS
     Dosage: 400MG EVERY TWO WEEKS AND THEN 200MG EVERY TWO WEEKS.
     Route: 058
     Dates: start: 20120208, end: 20120222
  4. METHOTREXATE SODIUM [Concomitant]
     Indication: RHEUMATOID ARTHRITIS
     Route: 058
     Dates: start: 20110101

REACTIONS (2)
  - COLITIS [None]
  - SINUSITIS [None]
